FAERS Safety Report 7888733-6 (Version None)
Quarter: 2011Q4

REPORT INFORMATION
  Report Type: 
  Country: None (occurrence: None)
  Receive Date: 20111103
  Receipt Date: 20111102
  Transmission Date: 20120403
  Serious: Yes (Other)
  Sender: FDA-Public Use
  Company Number: CN-PFIZER INC-2011216140

PATIENT
  Age: 36 Year
  Sex: Male

DRUGS (5)
  1. FLUVOXAMINE [Concomitant]
     Dosage: UNK
  2. ZOLOFT [Suspect]
     Indication: OBSESSIVE-COMPULSIVE DISORDER
     Dosage: 2 DF, 2X/DAY
     Route: 048
     Dates: start: 20100101
  3. ZOLOFT [Suspect]
     Indication: ANXIETY
     Dosage: 200 MG, UNK
     Route: 048
     Dates: end: 20110101
  4. TANDOSPIRONE [Concomitant]
     Dosage: 12 TABLETS, PER DAY
  5. ZOLOFT [Suspect]
     Dosage: 250 MG PER DAY
     Route: 048
     Dates: start: 20110101

REACTIONS (3)
  - OBSESSIVE-COMPULSIVE DISORDER [None]
  - ANXIETY [None]
  - OROPHARYNGEAL DISCOMFORT [None]
